FAERS Safety Report 7800344-7 (Version None)
Quarter: 2011Q4

REPORT INFORMATION
  Report Type: 
  Country: None (occurrence: None)
  Receive Date: 20111006
  Receipt Date: 20111004
  Transmission Date: 20120403
  Serious: No
  Sender: FDA-Public Use
  Company Number: US-TEVA-303704USA

PATIENT
  Sex: Female
  Weight: 53.572 kg

DRUGS (4)
  1. SIMVASTATIN [Concomitant]
  2. TRAMADOL HCL [Concomitant]
  3. QUINAPRIL [Concomitant]
  4. PROAIR HFA [Suspect]
     Route: 058
     Dates: start: 20110920, end: 20110930

REACTIONS (2)
  - HEADACHE [None]
  - ABDOMINAL DISCOMFORT [None]
